FAERS Safety Report 5622582-4 (Version None)
Quarter: 2008Q1

REPORT INFORMATION
  Report Type: 
  Country: None (occurrence: None)
  Receive Date: 20080114
  Receipt Date: 20061127
  Transmission Date: 20080703
  Serious: Yes (Other)
  Sender: FDA-Public Use
  Company Number: A03200503329

PATIENT
  Sex: Female

DRUGS (1)
  1. PLAVIX [Suspect]
     Dosage: - ORAL
     Route: 048

REACTIONS (1)
  - EXTRADURAL HAEMATOMA [None]
